FAERS Safety Report 23528328 (Version 1)
Quarter: 2024Q1

REPORT INFORMATION
  Report Type: Spontaneous
  Country: US (occurrence: None)
  Receive Date: 20240213
  Receipt Date: 20240213
  Transmission Date: 20240410
  Serious: Yes (Hospitalization)
  Sender: FDA-Public Use
  Company Number: None

PATIENT
  Age: 82 Year
  Sex: Male

DRUGS (1)
  1. PROCRIT [Suspect]
     Active Substance: ERYTHROPOIETIN

REACTIONS (4)
  - Urinary tract infection [None]
  - Kidney infection [None]
  - Hyperkalaemia [None]
  - Dialysis [None]

NARRATIVE: CASE EVENT DATE: 20240209
